FAERS Safety Report 7973587-X (Version None)
Quarter: 2011Q4

REPORT INFORMATION
  Report Type: 
  Country: None (occurrence: None)
  Receive Date: 20111202
  Receipt Date: 20111122
  Transmission Date: 20120403
  Serious: Yes (Other)
  Sender: FDA-Public Use
  Company Number: 2011SP016004

PATIENT
  Sex: Female

DRUGS (3)
  1. VENLAFAXINE [Concomitant]
  2. IMPLANON [Suspect]
     Indication: CONTRACEPTION
     Dosage: SBDE
     Route: 059
     Dates: end: 20110406
  3. PROPRANOLOL [Concomitant]

REACTIONS (4)
  - WEIGHT INCREASED [None]
  - MIGRAINE [None]
  - IMPLANT SITE INFLAMMATION [None]
  - DEVICE BREAKAGE [None]
